FAERS Safety Report 7705096-7 (Version None)
Quarter: 2011Q3

REPORT INFORMATION
  Report Type: 
  Country: None (occurrence: None)
  Receive Date: 20110823
  Receipt Date: 20110818
  Transmission Date: 20111222
  Serious: Yes (Hospitalization)
  Sender: FDA-Public Use
  Company Number: FR-BRISTOL-MYERS SQUIBB COMPANY-14319297

PATIENT
  Age: 31 Year
  Sex: Female

DRUGS (5)
  1. CELLCEPT [Suspect]
     Indication: RENAL TRANSPLANT
     Dates: start: 20020124
  2. FERROUS SULFATE TAB [Concomitant]
     Dates: start: 20060504
  3. BELATACEPT [Suspect]
     Indication: RENAL TRANSPLANT
     Route: 042
     Dates: start: 20020114
  4. PANTOPRAZOLE SODIUM [Concomitant]
     Dates: start: 20080820
  5. RENAGEL [Concomitant]
     Dates: start: 20080820

REACTIONS (2)
  - BLOOD CREATININE INCREASED [None]
  - SARCOIDOSIS [None]
